FAERS Safety Report 4875758-8 (Version None)
Quarter: 2006Q1

REPORT INFORMATION
  Report Type: 
  Country: None (occurrence: None)
  Receive Date: 20060109
  Receipt Date: 20051231
  Transmission Date: 20060701
  Serious: Yes (Death, Life-Threatening, Hospitalization, Other)
  Sender: FDA-Public Use
  Company Number: SG-ABBOTT-06P-141-0321160-00

PATIENT
  Sex: Male

DRUGS (5)
  1. KALETRA [Suspect]
     Indication: HIV INFECTION
     Route: 048
     Dates: start: 20051227, end: 20051230
  2. STAVUDINE [Concomitant]
     Indication: HIV INFECTION
     Route: 048
     Dates: start: 20041201, end: 20051230
  3. LAMIVUDINE [Concomitant]
     Indication: HIV INFECTION
     Route: 048
     Dates: start: 20041201, end: 20051230
  4. BACTRIM [Concomitant]
     Indication: INFECTION PROPHYLAXIS
     Route: 048
     Dates: start: 20041201
  5. NIFEDIPINE [Concomitant]
     Indication: HYPERTENSION
     Route: 048

REACTIONS (7)
  - CARDIAC ARREST [None]
  - CHEST DISCOMFORT [None]
  - DYSPNOEA [None]
  - DYSURIA [None]
  - HYPOTENSION [None]
  - LACTIC ACIDOSIS [None]
  - OEDEMA PERIPHERAL [None]
